FAERS Safety Report 10084632 (Version 1)
Quarter: 2014Q2

REPORT INFORMATION
  Report Type: Spontaneous
  Country: JP (occurrence: JP)
  Receive Date: 20140417
  Receipt Date: 20140417
  Transmission Date: 20141212
  Serious: Yes (Other)
  Sender: FDA-Public Use
  Company Number: JP-TEVA-474885ISR

PATIENT
  Sex: Male

DRUGS (7)
  1. CARBOPLATIN [Suspect]
     Indication: HAEMANGIOMA-THROMBOCYTOPENIA SYNDROME
     Dosage: 15 MG/KG FOR 2 MONTHLY CYCLES
     Route: 065
  2. PIRARUBICIN [Suspect]
     Indication: HAEMANGIOMA-THROMBOCYTOPENIA SYNDROME
     Dosage: 1.3 MG/KG FOR 2 MONTHLY CYCLES
     Route: 065
  3. CYCLOPHOSPHAMIDE [Suspect]
     Indication: HAEMANGIOMA-THROMBOCYTOPENIA SYNDROME
     Dosage: 40 MG/KG FOR 2 MONTHLY CYCLES; THEN REGIMEN SWITCHED TO 10 MG/KG, 3DAY FOR 2 MONTHLY CYCLES
     Route: 065
  4. CYCLOPHOSPHAMIDE [Suspect]
     Indication: HAEMANGIOMA-THROMBOCYTOPENIA SYNDROME
     Dosage: 10 MG/KG, 3DAY FOR 1 CYCLE; THEN REGIMEN SWITCHED TO 40 MG/KG FOR 2 MONTHLY CYCLES
     Route: 065
  5. VINCRISTINE [Concomitant]
     Indication: HAEMANGIOMA-THROMBOCYTOPENIA SYNDROME
     Dosage: 0.05 MG/KG FOR 2 MONTHLY CYCLES
     Route: 065
  6. DACTINOMYCIN [Concomitant]
     Indication: HAEMANGIOMA-THROMBOCYTOPENIA SYNDROME
     Dosage: 0.015 MG/KG/DAY, 4 DAY, FOR 2 MONTHLY CYCLES
     Route: 065
  7. PROPRANOLOL [Concomitant]
     Indication: HAEMANGIOMA-THROMBOCYTOPENIA SYNDROME
     Route: 065

REACTIONS (2)
  - Neutropenia [Unknown]
  - Cystitis haemorrhagic [Unknown]
